FAERS Safety Report 17015760 (Version 1)
Quarter: 2019Q4

REPORT INFORMATION
  Report Type: Spontaneous
  Country: US (occurrence: US)
  Receive Date: 20191003
  Receipt Date: 20191003
  Transmission Date: 20200122
  Serious: No
  Sender: FDA-Public Use
  Company Number: None

PATIENT
  Age: 26 Year
  Sex: Female

DRUGS (1)
  1. HYDROXYPROG 250MG/ML (5ML) SDV [Suspect]
     Active Substance: HYDROXYPROGESTERONE
     Route: 030
     Dates: start: 201909

REACTIONS (5)
  - Injection site urticaria [None]
  - Reaction to preservatives [None]
  - Injection site bruising [None]
  - Injection site erythema [None]
  - Injection site pain [None]

NARRATIVE: CASE EVENT DATE: 20191003
